FAERS Safety Report 15098454 (Version 1)
Quarter: 2018Q3

REPORT INFORMATION
  Report Type: Report from Study
  Country: CA (occurrence: CA)
  Receive Date: 20180702
  Receipt Date: 20180702
  Transmission Date: 20181010
  Serious: Yes (Other)
  Sender: FDA-Public Use
  Company Number: CA-TAKEDA-2018TUS020913

PATIENT
  Age: 68 Year
  Sex: Male

DRUGS (3)
  1. PENTASA [Concomitant]
     Active Substance: MESALAMINE
     Dosage: UNK UNK, BID
  2. VITAMIN B12 [Concomitant]
     Active Substance: CYANOCOBALAMIN
     Dosage: UNK
  3. VEDOLIZUMAB [Suspect]
     Active Substance: VEDOLIZUMAB
     Indication: CROHN^S DISEASE
     Dosage: 300 MG, UNK
     Route: 042
     Dates: start: 20170926

REACTIONS (1)
  - Colon adenoma [Unknown]
